FAERS Safety Report 5670731-4 (Version None)
Quarter: 2008Q1

REPORT INFORMATION
  Report Type: 
  Country: None (occurrence: None)
  Receive Date: 20080318
  Receipt Date: 20080312
  Transmission Date: 20080703
  Serious: Yes (Other)
  Sender: FDA-Public Use
  Company Number: PHBS2008FR03333

PATIENT
  Sex: Male

DRUGS (1)
  1. PARLODEL [Suspect]
     Indication: PARKINSON'S DISEASE
     Route: 048
     Dates: start: 20030310

REACTIONS (1)
  - PATHOLOGICAL GAMBLING [None]
